FAERS Safety Report 24803514 (Version 1)
Quarter: 2025Q1

REPORT INFORMATION
  Report Type: Spontaneous
  Country: US (occurrence: US)
  Receive Date: 20250103
  Receipt Date: 20250103
  Transmission Date: 20250409
  Serious: Yes (Other)
  Sender: STRIDES
  Company Number: US-STRIDES ARCOLAB LIMITED-2024SP017354

PATIENT

DRUGS (3)
  1. LOPERAMIDE [Suspect]
     Active Substance: LOPERAMIDE
     Indication: Diarrhoea
     Route: 065
  2. CARBIDOPA AND LEVODOPA [Suspect]
     Active Substance: CARBIDOPA\LEVODOPA
     Indication: Parkinson^s disease
     Route: 065
  3. CARBIDOPA AND LEVODOPA [Suspect]
     Active Substance: CARBIDOPA\LEVODOPA
     Route: 065

REACTIONS (2)
  - Anaemia [Unknown]
  - Therapy non-responder [Unknown]
